FAERS Safety Report 12246085 (Version 2)
Quarter: 2017Q1

REPORT INFORMATION
  Report Type: Spontaneous
  Country: US (occurrence: US)
  Receive Date: 20160407
  Receipt Date: 20170216
  Transmission Date: 20170428
  Serious: Yes (Other)
  Sender: FDA-Public Use
  Company Number: US-ELI_LILLY_AND_COMPANY-US201604000484

PATIENT
  Sex: Female

DRUGS (2)
  1. CYMBALTA [Suspect]
     Active Substance: DULOXETINE HYDROCHLORIDE
     Indication: DEPRESSION
     Dosage: 30 MG, QD
     Route: 048
     Dates: start: 20130717, end: 20130723
  2. CYMBALTA [Suspect]
     Active Substance: DULOXETINE HYDROCHLORIDE
     Indication: PAIN
     Dosage: 60 MG, QD
     Route: 048
     Dates: start: 20130724

REACTIONS (23)
  - Sleep disorder [Unknown]
  - Mood swings [Unknown]
  - Withdrawal syndrome [Unknown]
  - Hyperhidrosis [Unknown]
  - Vomiting [Unknown]
  - Paranoia [Unknown]
  - Nausea [Unknown]
  - Agitation [Unknown]
  - Fatigue [Unknown]
  - Irritability [Unknown]
  - Suicidal ideation [Unknown]
  - Headache [Unknown]
  - Nervousness [Unknown]
  - Confusional state [Unknown]
  - Dizziness [Unknown]
  - Anxiety [Unknown]
  - Crying [Unknown]
  - Affect lability [Unknown]
  - Insomnia [Unknown]
  - Nightmare [Unknown]
  - Dysphoria [Unknown]
  - Vertigo [Unknown]
  - Diarrhoea [Unknown]
